FAERS Safety Report 16252178 (Version 1)
Quarter: 2019Q2

REPORT INFORMATION
  Report Type: Report from Study
  Country: DE (occurrence: DE)
  Receive Date: 20190429
  Receipt Date: 20190429
  Transmission Date: 20190711
  Serious: Yes (Hospitalization)
  Sender: FDA-Public Use
  Company Number: DE-JNJFOC-20190436165

PATIENT
  Age: 62 Year
  Sex: Male

DRUGS (1)
  1. XARELTO [Suspect]
     Active Substance: RIVAROXABAN
     Indication: ATRIAL FIBRILLATION
     Route: 048

REACTIONS (3)
  - Headache [Recovering/Resolving]
  - Dizziness [Recovering/Resolving]
  - Cerebellar haemorrhage [Recovering/Resolving]

NARRATIVE: CASE EVENT DATE: 20190324
